FAERS Safety Report 7585889-X (Version None)
Quarter: 2011Q2

REPORT INFORMATION
  Report Type: 
  Country: None (occurrence: None)
  Receive Date: 20110603
  Receipt Date: 20110331
  Transmission Date: 20111010
  Serious: No
  Sender: FDA-Public Use
  Company Number: 201101005

PATIENT
  Age: 72 Year
  Sex: Male

DRUGS (2)
  1. XIAFLEX [Suspect]
     Indication: DUPUYTREN'S CONTRACTURE
     Dosage: 1 IN 1 D, INTRALESIONAL
     Route: 026
     Dates: start: 20101228, end: 20101228
  2. LIDOCAINE [Suspect]
     Dosage: 5 CC
     Dates: start: 20101229, end: 20101229

REACTIONS (3)
  - PAIN [None]
  - CONTUSION [None]
  - LACERATION [None]
